FAERS Safety Report 4917142-4 (Version None)
Quarter: 2006Q1

REPORT INFORMATION
  Report Type: 
  Country: None (occurrence: None)
  Receive Date: 20060221
  Receipt Date: 20060216
  Transmission Date: 20060701
  Serious: Yes (Death, Hospitalization)
  Sender: FDA-Public Use
  Company Number: DE-AVENTIS-200610456DE

PATIENT
  Age: 58 Year
  Sex: Male

DRUGS (4)
  1. TAXOTERE [Suspect]
     Indication: METASTASIS
     Route: 041
     Dates: start: 20050721, end: 20050721
  2. TAXOTERE [Suspect]
     Indication: OESOPHAGEAL CARCINOMA
     Route: 041
     Dates: start: 20050721, end: 20050721
  3. CISPLATIN [Concomitant]
     Indication: METASTASIS
     Dates: start: 20050721, end: 20050722
  4. CISPLATIN [Concomitant]
     Indication: OESOPHAGEAL CARCINOMA
     Dates: start: 20050721, end: 20050722

REACTIONS (1)
  - PANCYTOPENIA [None]
